FAERS Safety Report 10270105 (Version 2)
Quarter: 2014Q3

REPORT INFORMATION
  Report Type: Spontaneous
  Country: DE (occurrence: DE)
  Receive Date: 20140701
  Receipt Date: 20140813
  Transmission Date: 20150326
  Serious: Yes (Hospitalization, Other)
  Sender: FDA-Public Use
  Company Number: DE-AMGEN-DEUSP2014047956

PATIENT
  Sex: Female

DRUGS (1)
  1. PROLIA [Suspect]
     Active Substance: DENOSUMAB
     Indication: PRODUCT USED FOR UNKNOWN INDICATION
     Route: 065

REACTIONS (4)
  - Diarrhoea [Unknown]
  - Hypoaesthesia [Unknown]
  - Pharyngeal oedema [Unknown]
  - Sneezing [Unknown]

NARRATIVE: CASE EVENT DATE: 2014
